FAERS Safety Report 26170327 (Version 1)
Quarter: 2025Q4

REPORT INFORMATION
  Report Type: Report from Study
  Country: US (occurrence: US)
  Receive Date: 20251217
  Receipt Date: 20251217
  Transmission Date: 20260119
  Serious: Yes (Death)
  Sender: ABBVIE
  Company Number: US-ABBVIE-6585872

PATIENT
  Age: 67 Year
  Sex: Male

DRUGS (1)
  1. EMRELIS [Suspect]
     Active Substance: TELISOTUZUMAB VEDOTIN-TLLV
     Indication: Product used for unknown indication
     Dosage: LAST ADMIN : 2025
     Route: 042
     Dates: start: 20251015

REACTIONS (1)
  - Death [Fatal]

NARRATIVE: CASE EVENT DATE: 20251101
